FAERS Safety Report 6871937-9 (Version None)
Quarter: 2010Q3

REPORT INFORMATION
  Report Type: 
  Country: None (occurrence: None)
  Receive Date: 20100723
  Receipt Date: 20100714
  Transmission Date: 20110219
  Serious: Yes (Life-Threatening, Hospitalization)
  Sender: FDA-Public Use
  Company Number: NSADSS2001036603

PATIENT
  Sex: Female

DRUGS (10)
  1. REMICADE [Suspect]
     Indication: CROHN'S DISEASE
     Route: 041
     Dates: start: 19971014
  2. REMICADE [Suspect]
     Route: 041
     Dates: start: 19971014
  3. IMUREL [Concomitant]
     Dates: start: 19971014
  4. PREDNISOLON [Concomitant]
  5. DESOLETT [Concomitant]
     Route: 065
  6. ASACOL [Concomitant]
     Route: 065
  7. KETOGAN [Concomitant]
  8. DEXTROPROPOXYPHENE [Concomitant]
  9. ACETAMINOPHEN [Concomitant]
  10. PREDNISONE [Concomitant]

REACTIONS (2)
  - B-CELL LYMPHOMA [None]
  - PROCTALGIA [None]
